FAERS Safety Report 9048447 (Version 1)
Quarter: 2013Q1

REPORT INFORMATION
  Report Type: Spontaneous
  Country: US (occurrence: None)
  Receive Date: 20130114
  Receipt Date: 20130114
  Transmission Date: 20140127
  Serious: Yes (Death)
  Sender: FDA-Public Use
  Company Number: TPA2013A00654

PATIENT
  Age: 50 Year
  Sex: Male

DRUGS (3)
  1. EDARBI [Suspect]
     Indication: BLOOD PRESSURE ABNORMAL
     Route: 048
     Dates: start: 2012, end: 2012
  2. EDARBYCLOR [Suspect]
     Indication: BLOOD PRESSURE ABNORMAL
     Dates: start: 2012
  3. UNSPECIFIED MEDICATIONS [Concomitant]

REACTIONS (3)
  - Drug effect decreased [None]
  - Myocardial infarction [None]
  - Blood pressure abnormal [None]
